FAERS Safety Report 4567036-1 (Version None)
Quarter: 2005Q1

REPORT INFORMATION
  Report Type: 
  Country: None (occurrence: None)
  Receive Date: 20050201
  Receipt Date: 20041105
  Transmission Date: 20050727
  Serious: Yes (Other)
  Sender: FDA-Public Use
  Company Number: US-BRISTOL-MYERS SQUIBB COMPANY-12757357

PATIENT
  Age: 65 Year
  Sex: Male

DRUGS (1)
  1. STADOL [Suspect]
     Indication: MIGRAINE
     Route: 045
     Dates: start: 19950701

REACTIONS (1)
  - DEPENDENCE [None]
